FAERS Safety Report 13614580 (Version 12)
Quarter: 2019Q1

REPORT INFORMATION
  Report Type: Spontaneous
  Country: JP (occurrence: JP)
  Receive Date: 20170606
  Receipt Date: 20190226
  Transmission Date: 20190417
  Serious: Yes (Death, Hospitalization, Other)
  Sender: FDA-Public Use
  Company Number: JP-009507513-1705JPN001378J

PATIENT
  Age: 63 Year
  Sex: Male
  Weight: 54 kg

DRUGS (30)
  1. ETODOLAC. [Concomitant]
     Active Substance: ETODOLAC
     Indication: CANCER PAIN
     Dosage: 200 MG, BID
     Route: 048
     Dates: start: 20170501, end: 20170612
  2. MEROPENEM HYDRATE [Concomitant]
     Active Substance: MEROPENEM
     Indication: PROPHYLAXIS
     Dosage: 1 G, TID
     Route: 041
     Dates: start: 20170505, end: 20170519
  3. RECOMODULIN [Concomitant]
     Active Substance: THROMBOMODULIN ALFA
     Indication: DISSEMINATED INTRAVASCULAR COAGULATION
     Dosage: 20480 IU, QD
     Route: 041
     Dates: start: 20170510, end: 20170517
  4. AMBISOME [Concomitant]
     Active Substance: AMPHOTERICIN B
     Indication: BLOOD BETA-D-GLUCAN INCREASED
     Dosage: 135 MG, QD
     Route: 041
     Dates: start: 20170519, end: 20170601
  5. MINOMYCIN [Concomitant]
     Active Substance: MINOCYCLINE HYDROCHLORIDE
     Indication: PROPHYLAXIS
     Dosage: 200 MG, BID
     Route: 041
     Dates: start: 20170519, end: 20170602
  6. PREDONINE [Concomitant]
     Active Substance: PREDNISOLONE
     Dosage: 50 MG, QD
     Route: 048
     Dates: start: 20170526, end: 20170601
  7. ZYVOX [Concomitant]
     Active Substance: LINEZOLID
     Indication: PYREXIA
     Dosage: 600 MG, BID
     Route: 051
     Dates: start: 20170513, end: 20170517
  8. ALBUMINAR [Concomitant]
     Active Substance: ALBUMIN HUMAN
     Dosage: 12.5 G, BID
     Route: 051
     Dates: start: 20170530, end: 20170604
  9. METHYLPREDNISOLONE SODIUM SUCCINATE. [Concomitant]
     Active Substance: METHYLPREDNISOLONE SODIUM SUCCINATE
     Dosage: 1000 MG, QD
     Route: 051
     Dates: start: 20170512, end: 20170514
  10. PREDONINE [Concomitant]
     Active Substance: PREDNISOLONE
     Dosage: 55 MG, QD
     Route: 048
     Dates: start: 20170521
  11. KEYTRUDA [Suspect]
     Active Substance: PEMBROLIZUMAB
     Indication: LUNG ADENOCARCINOMA STAGE IV
     Dosage: 200 MG, Q3W
     Route: 041
     Dates: start: 20170425, end: 2017
  12. FENTOS [Concomitant]
     Active Substance: FENTANYL
     Indication: CANCER PAIN
     Dosage: 1 MG, QD
     Route: 061
     Dates: end: 20170503
  13. BACTRAMIN [Concomitant]
     Active Substance: SULFAMETHOXAZOLE\TRIMETHOPRIM
     Indication: PROPHYLAXIS
     Dosage: 1 DF, QD
     Route: 048
     Dates: start: 20170504, end: 20170612
  14. PREDONINE [Concomitant]
     Active Substance: PREDNISOLONE
     Dosage: 55 MG, QD
     Route: 048
     Dates: start: 20170515, end: 20170517
  15. METFORMIN HYDROCHLORIDE. [Concomitant]
     Active Substance: METFORMIN HYDROCHLORIDE
     Indication: TYPE 2 DIABETES MELLITUS
     Dosage: 250 MG, BID
     Route: 048
     Dates: end: 20170508
  16. ALBUMINAR [Concomitant]
     Active Substance: ALBUMIN HUMAN
     Indication: HYPOALBUMINAEMIA
     Dosage: 12.5 G, BID
     Route: 051
     Dates: start: 20170512, end: 20170514
  17. ZOSYN [Concomitant]
     Active Substance: PIPERACILLIN SODIUM\TAZOBACTAM SODIUM
     Indication: PROPHYLAXIS
     Dosage: 4.5 G, TID
     Route: 051
     Dates: start: 20170519, end: 20170531
  18. METHYLPREDNISOLONE SODIUM SUCCINATE. [Concomitant]
     Active Substance: METHYLPREDNISOLONE SODIUM SUCCINATE
     Dosage: 1000 MG, QD
     Route: 051
     Dates: start: 20170518, end: 20170520
  19. EQUA [Concomitant]
     Active Substance: VILDAGLIPTIN
     Indication: TYPE 2 DIABETES MELLITUS
     Dosage: 50 MG, BID
     Route: 048
     Dates: end: 20170612
  20. METHYLPREDNISOLONE SODIUM SUCCINATE. [Concomitant]
     Active Substance: METHYLPREDNISOLONE SODIUM SUCCINATE
     Indication: INTERSTITIAL LUNG DISEASE
     Dosage: 1000 MG, QD
     Route: 051
     Dates: start: 20170504, end: 20170506
  21. NEORAL [Concomitant]
     Active Substance: CYCLOSPORINE
     Indication: INTERSTITIAL LUNG DISEASE
     Dosage: 150 MG, QD
     Route: 048
     Dates: start: 20170508, end: 20170612
  22. FUNGUARD [Concomitant]
     Active Substance: MICAFUNGIN SODIUM
     Indication: PROPHYLAXIS
     Dosage: 150 MG, QD
     Route: 041
     Dates: start: 20170508, end: 20170518
  23. RECOMODULIN [Concomitant]
     Active Substance: THROMBOMODULIN ALFA
     Dosage: 20480 IU, QD
     Route: 041
     Dates: start: 20170530, end: 20170604
  24. PREDONINE [Concomitant]
     Active Substance: PREDNISOLONE
     Indication: INTERSTITIAL LUNG DISEASE
     Dosage: 55 MG, QD
     Route: 048
     Dates: start: 20170507, end: 20170511
  25. PREDONINE [Concomitant]
     Active Substance: PREDNISOLONE
     Dosage: 45 MG, QD
     Route: 048
     Dates: start: 20170602, end: 20170608
  26. GLIMEPIRIDE. [Concomitant]
     Active Substance: GLIMEPIRIDE
     Indication: TYPE 2 DIABETES MELLITUS
     Dosage: 1 MG, QD
     Route: 048
     Dates: end: 20170503
  27. NEXIUM [Concomitant]
     Active Substance: ESOMEPRAZOLE MAGNESIUM
     Indication: PROPHYLAXIS
     Dosage: 20 MG, QD
     Route: 048
     Dates: start: 20170504, end: 20170612
  28. MEROPENEM HYDRATE [Concomitant]
     Active Substance: MEROPENEM
     Dosage: 1 G, TID
     Route: 041
     Dates: start: 20170601, end: 20170605
  29. VANCOMYCIN HYDROCHLORIDE. [Concomitant]
     Active Substance: VANCOMYCIN HYDROCHLORIDE
     Indication: PYREXIA
     Dosage: 0.5 G, BID
     Route: 051
     Dates: start: 20170511, end: 20170512
  30. PREDONINE [Concomitant]
     Active Substance: PREDNISOLONE
     Dosage: 40 MG, QD
     Route: 048
     Dates: start: 20170609, end: 20170612

REACTIONS (13)
  - Bacterial infection [Fatal]
  - Disseminated intravascular coagulation [Fatal]
  - Malignant neoplasm progression [Fatal]
  - C-reactive protein increased [Fatal]
  - Hypoalbuminaemia [Not Recovered/Not Resolved]
  - Small intestinal haemorrhage [Fatal]
  - Liver disorder [Not Recovered/Not Resolved]
  - Disseminated intravascular coagulation [Recovered/Resolved]
  - Blood beta-D-glucan increased [Not Recovered/Not Resolved]
  - Interstitial lung disease [Fatal]
  - Fungal infection [Fatal]
  - Pyrexia [Fatal]
  - Platelet count decreased [Not Recovered/Not Resolved]

NARRATIVE: CASE EVENT DATE: 2017
